FAERS Safety Report 12412980 (Version 1)
Quarter: 2016Q2

REPORT INFORMATION
  Report Type: Spontaneous
  Country: KW (occurrence: KW)
  Receive Date: 20160527
  Receipt Date: 20160527
  Transmission Date: 20160815
  Serious: Yes (Hospitalization, Other)
  Sender: FDA-Public Use
  Company Number: KW-WATSON-2016-10858

PATIENT
  Age: 26 Year
  Sex: Female

DRUGS (3)
  1. FLUOXETINE [Suspect]
     Active Substance: FLUOXETINE HYDROCHLORIDE
     Indication: BORDERLINE PERSONALITY DISORDER
     Dosage: 40 MG, DAILY
     Route: 065
  2. ATOMOXETINE (UNKNOWN) [Interacting]
     Active Substance: ATOMOXETINE
     Indication: ATTENTION DEFICIT/HYPERACTIVITY DISORDER
     Route: 065
  3. ATOMOXETINE (UNKNOWN) [Interacting]
     Active Substance: ATOMOXETINE
     Dosage: 40 MG, DAILY
     Route: 065

REACTIONS (2)
  - Stress cardiomyopathy [Recovered/Resolved]
  - Drug interaction [Recovered/Resolved]
